FAERS Safety Report 8716460 (Version 2)
Quarter: 2013Q4

REPORT INFORMATION
  Report Type: Spontaneous
  Country: US (occurrence: US)
  Receive Date: 20120810
  Receipt Date: 20131031
  Transmission Date: 20140711
  Serious: No
  Sender: FDA-Public Use
  Company Number: US-009507513-2012SP036233

PATIENT
  Sex: Male
  Weight: 68.27 kg

DRUGS (2)
  1. CLARITYN ALLERGY [Suspect]
     Indication: SINUS HEADACHE
     Dosage: UNK UNK, UNKNOWN
     Route: 048
     Dates: start: 2010, end: 2012
  2. CLARITYN ALLERGY [Suspect]
     Indication: SEASONAL ALLERGY

REACTIONS (3)
  - Therapeutic response unexpected [Unknown]
  - Drug ineffective for unapproved indication [Unknown]
  - Overdose [Unknown]
